FAERS Safety Report 25026427 (Version 1)
Quarter: 2025Q1

REPORT INFORMATION
  Report Type: Spontaneous
  Country: US (occurrence: US)
  Receive Date: 20250301
  Receipt Date: 20250301
  Transmission Date: 20250408
  Serious: Yes (Other)
  Sender: ACCORD
  Company Number: US-MLMSERVICE-20250210-PI403861-00101-1

PATIENT
  Age: 25 Year
  Sex: Male

DRUGS (6)
  1. CISPLATIN [Suspect]
     Active Substance: CISPLATIN
     Indication: Germ cell cancer
  2. ETOPOSIDE [Suspect]
     Active Substance: ETOPOSIDE
     Indication: Germ cell cancer
  3. IFOSFAMIDE [Suspect]
     Active Substance: IFOSFAMIDE
     Indication: Germ cell cancer
  4. IFOSFAMIDE [Suspect]
     Active Substance: IFOSFAMIDE
     Indication: Mediastinum neoplasm
  5. CISPLATIN [Suspect]
     Active Substance: CISPLATIN
     Indication: Mediastinum neoplasm
  6. ETOPOSIDE [Suspect]
     Active Substance: ETOPOSIDE
     Indication: Mediastinum neoplasm

REACTIONS (2)
  - Pancytopenia [Unknown]
  - Off label use [Unknown]
